FAERS Safety Report 18291336 (Version 1)
Quarter: 2020Q3

REPORT INFORMATION
  Report Type: Spontaneous
  Country: US (occurrence: US)
  Receive Date: 20200921
  Receipt Date: 20200921
  Transmission Date: 20201103
  Serious: No
  Sender: FDA-Public Use
  Company Number: US-BAUSCH-BL-2020-025759

PATIENT
  Age: 78 Year
  Sex: Female
  Weight: 65.83 kg

DRUGS (1)
  1. CARDIZEM CD [Suspect]
     Active Substance: DILTIAZEM HYDROCHLORIDE
     Indication: HYPERTENSION
     Dosage: ABOUT 4 YEARS AGO
     Route: 048
     Dates: end: 202007

REACTIONS (3)
  - Blood pressure increased [Unknown]
  - Therapy interrupted [Unknown]
  - Product supply issue [Unknown]

NARRATIVE: CASE EVENT DATE: 2020
